FAERS Safety Report 9838595 (Version 1)
Quarter: 2014Q1

REPORT INFORMATION
  Report Type: Spontaneous
  Country: MX (occurrence: None)
  Receive Date: 20140116
  Receipt Date: 20140116
  Transmission Date: 20141002
  Serious: Yes (Life-Threatening)
  Sender: FDA-Public Use
  Company Number: VAL_02899_2014

PATIENT
  Sex: Female

DRUGS (3)
  1. METOPROLOL (METOPROLOL - METOPROLOL TARTRATE) [Suspect]
     Indication: PRODUCT USED FOR UNKNOWN INDICATION
     Dosage: (DF)
  2. VISKEN [Suspect]
     Dosage: (5 MG, DAILY (WITHOUT MEDICATION FOR 2 MONTHS) ORAL), (5 MG, DAILY ORAL)
     Route: 048
     Dates: start: 201001
  3. IBUPROFEN [Concomitant]

REACTIONS (6)
  - Pregnancy [None]
  - Headache [None]
  - Feeling abnormal [None]
  - Apparent death [None]
  - Exposure during pregnancy [None]
  - Drug dependence [None]
